FAERS Safety Report 24897884 (Version 2)
Quarter: 2025Q1

REPORT INFORMATION
  Report Type: Spontaneous
  Country: JP (occurrence: JP)
  Receive Date: 20250129
  Receipt Date: 20250219
  Transmission Date: 20250408
  Serious: Yes (Other)
  Sender: ASTELLAS
  Company Number: JP-ASTELLAS-2024-AER-013672

PATIENT
  Age: 75 Year
  Sex: Male

DRUGS (3)
  1. VYLOY [Suspect]
     Active Substance: ZOLBETUXIMAB-CLZB
     Indication: Gastric cancer
     Dosage: FIRST DOSE 1280MG
     Route: 042
     Dates: start: 202410
  2. VYLOY [Suspect]
     Active Substance: ZOLBETUXIMAB-CLZB
     Dosage: 960 MG AFTER THE SECOND DOSE
     Route: 042
  3. CAPECITABINE [Concomitant]
     Active Substance: CAPECITABINE
     Indication: Product used for unknown indication
     Route: 065

REACTIONS (2)
  - Thrombosis [Not Recovered/Not Resolved]
  - Decreased appetite [Recovered/Resolved]

NARRATIVE: CASE EVENT DATE: 20241001
